FAERS Safety Report 21926835 (Version 1)
Quarter: 2023Q1

REPORT INFORMATION
  Report Type: Spontaneous
  Country: MX (occurrence: None)
  Receive Date: 20230128
  Receipt Date: 20230128
  Transmission Date: 20230417
  Serious: Yes (Other)
  Sender: FDA-Public Use
  Company Number: None

PATIENT
  Age: 30 Year
  Sex: Female
  Weight: 87 kg

DRUGS (3)
  1. MAGNESIUM HYDROXIDE [Suspect]
     Active Substance: MAGNESIUM HYDROXIDE
     Indication: Constipation
     Dosage: OTHER QUANTITY : 2 TABLESPOON(S);?FREQUENCY : EVERY 12 HOURS;?
     Route: 048
  2. LIDOCAINE [Concomitant]
     Active Substance: LIDOCAINE
  3. HYDROCORTISONE [Concomitant]

REACTIONS (1)
  - Haematochezia [None]

NARRATIVE: CASE EVENT DATE: 20230128
